FAERS Safety Report 18755799 (Version 1)
Quarter: 2021Q1

REPORT INFORMATION
  Report Type: Spontaneous
  Country: FR (occurrence: FR)
  Receive Date: 20210119
  Receipt Date: 20210119
  Transmission Date: 20210419
  Serious: Yes (Death)
  Sender: FDA-Public Use
  Company Number: FR-ROCHE-2749800

PATIENT
  Age: 31 Year
  Sex: Male

DRUGS (2)
  1. TERCIAN [Suspect]
     Active Substance: CYAMEMAZINE
     Indication: TOXICITY TO VARIOUS AGENTS
     Route: 048
     Dates: start: 20201214, end: 20201214
  2. DIAZEPAM. [Suspect]
     Active Substance: DIAZEPAM
     Indication: TOXICITY TO VARIOUS AGENTS
     Dosage: NR
     Route: 048
     Dates: start: 20201214, end: 20201214

REACTIONS (3)
  - Respiratory depression [Fatal]
  - Coma [Fatal]
  - Drug interaction [Fatal]

NARRATIVE: CASE EVENT DATE: 20201214
